FAERS Safety Report 9912591 (Version 2)
Quarter: 2014Q1

REPORT INFORMATION
  Report Type: Spontaneous
  Country: US (occurrence: None)
  Receive Date: 20140212
  Receipt Date: 20140225
  Transmission Date: 20141002
  Serious: Yes (Hospitalization, Other)
  Sender: FDA-Public Use
  Company Number: 2013-US-002974

PATIENT
  Age: 58 Year
  Sex: Male
  Weight: 78.5 kg

DRUGS (1)
  1. PRIALT [Suspect]
     Indication: PAIN
     Dosage: UG/ML
     Dates: start: 20130813

REACTIONS (17)
  - Multi-organ disorder [None]
  - Myocarditis [None]
  - Acute psychosis [None]
  - Rhabdomyolysis [None]
  - Drug withdrawal syndrome [None]
  - Pneumonia [None]
  - Mania [None]
  - Fall [None]
  - Balance disorder [None]
  - Constipation [None]
  - Confusional state [None]
  - Anxiety [None]
  - Renal failure acute [None]
  - Transaminases increased [None]
  - Tricuspid valve incompetence [None]
  - Psychotic disorder [None]
  - Hallucination, auditory [None]
